FAERS Safety Report 6950455-3 (Version None)
Quarter: 2010Q3

REPORT INFORMATION
  Report Type: 
  Country: None (occurrence: None)
  Receive Date: 20100828
  Receipt Date: 20100309
  Transmission Date: 20110219
  Serious: No
  Sender: FDA-Public Use
  Company Number: US-ABBOTT-10P-163-0625439-00

PATIENT
  Sex: Female
  Weight: 72.64 kg

DRUGS (15)
  1. NIASPAN [Suspect]
     Indication: BLOOD TRIGLYCERIDES INCREASED
     Dates: start: 20100111, end: 20100201
  2. FUROSEMIDE [Concomitant]
     Indication: FLUID RETENTION
  3. AMLODIPINE [Concomitant]
     Indication: HYPERTENSION
  4. LEVOTHYROXINE [Concomitant]
     Indication: HYPOTHYROIDISM
  5. PRAVASTATIN [Concomitant]
     Indication: BLOOD TRIGLYCERIDES INCREASED
  6. POTASSIUM [Concomitant]
     Indication: ELECTROLYTE SUBSTITUTION THERAPY
  7. OMEPRAZOLE [Concomitant]
     Indication: GASTROOESOPHAGEAL REFLUX DISEASE
  8. LORAZEPAM [Concomitant]
     Indication: ANXIETY
  9. BUPROPRIAN [Concomitant]
     Indication: DEPRESSION
  10. LORATADINE [Concomitant]
     Indication: HYPERSENSITIVITY
  11. FISH OIL [Concomitant]
     Indication: ROUTINE HEALTH MAINTENANCE
  12. VITAMIN E [Concomitant]
     Indication: ROUTINE HEALTH MAINTENANCE
  13. SELENIUM [Concomitant]
     Indication: ROUTINE HEALTH MAINTENANCE
  14. MULTIPLE VITAMINS [Concomitant]
     Indication: VITAMIN SUPPLEMENTATION
  15. EPIPEN [Concomitant]
     Indication: HYPERSENSITIVITY

REACTIONS (2)
  - PARAESTHESIA [None]
  - SKIN BURNING SENSATION [None]
